FAERS Safety Report 12743052 (Version 1)
Quarter: 2016Q3

REPORT INFORMATION
  Report Type: Spontaneous
  Country: US (occurrence: US)
  Receive Date: 20160914
  Receipt Date: 20160914
  Transmission Date: 20161109
  Serious: No
  Sender: FDA-Public Use
  Company Number: US-SIGMA-TAU US-2016STPI000281

PATIENT
  Sex: Male

DRUGS (3)
  1. MATULANE [Suspect]
     Active Substance: PROCARBAZINE HYDROCHLORIDE
     Indication: ANAPLASTIC OLIGODENDROGLIOMA
     Dosage: 150 MG, QD DAYS 8-21
     Route: 048
     Dates: start: 20160116
  2. VINCRISTINE [Suspect]
     Active Substance: VINCRISTINE
     Indication: ANAPLASTIC OLIGODENDROGLIOMA
     Dosage: 2 MG, DAYS 8 AND 29 Q6W
     Route: 042
     Dates: start: 201601
  3. LOMUSTINE. [Concomitant]
     Active Substance: LOMUSTINE
     Indication: ANAPLASTIC OLIGODENDROGLIOMA
     Dosage: 200 MG, Q6W ON DAY 1
     Dates: start: 201601

REACTIONS (3)
  - Hypersensitivity [Recovered/Resolved]
  - Neuropathy peripheral [Not Recovered/Not Resolved]
  - Anaemia [Unknown]

NARRATIVE: CASE EVENT DATE: 2016
